FAERS Safety Report 9531581 (Version 3)
Quarter: 2013Q4

REPORT INFORMATION
  Report Type: Spontaneous
  Country: US (occurrence: US)
  Receive Date: 20130918
  Receipt Date: 20131017
  Transmission Date: 20140711
  Serious: Yes (Other)
  Sender: FDA-Public Use
  Company Number: US-PFIZER INC-2013268254

PATIENT
  Age: 22 Year
  Sex: Male
  Weight: 77.1 kg

DRUGS (7)
  1. CHANTIX [Suspect]
     Indication: SMOKING CESSATION THERAPY
     Dosage: 0.5 MG, DAILY
     Dates: start: 20130729, end: 20130731
  2. CHANTIX [Suspect]
     Dosage: 0.5 MG, 2X/DAY
     Dates: start: 20130801, end: 20130804
  3. CHANTIX [Suspect]
     Dosage: 1 MG, 2X/DAY
     Dates: start: 20130805, end: 20130805
  4. ABILIFY [Suspect]
     Indication: BIPOLAR DISORDER
     Dosage: 10 MG, DAILY
     Dates: start: 2009
  5. ABILIFY [Suspect]
     Indication: SCHIZOPHRENIA
     Dosage: 20 MG, DAILY
     Dates: end: 20130805
  6. VYVANSE [Suspect]
     Indication: ATTENTION DEFICIT/HYPERACTIVITY DISORDER
     Dosage: 20 MG, DAILY
     Dates: start: 2010
  7. VYVANSE [Suspect]
     Dosage: 70 MG, DAILY
     Dates: end: 20130805

REACTIONS (6)
  - Abnormal behaviour [Recovered/Resolved]
  - Agitation [Recovered/Resolved]
  - Insomnia [Recovered/Resolved]
  - Irritability [Recovered/Resolved]
  - Aggression [Recovered/Resolved]
  - Activities of daily living impaired [Recovered/Resolved]
